FAERS Safety Report 8426722-3 (Version None)
Quarter: 2012Q2

REPORT INFORMATION
  Report Type: 
  Country: None (occurrence: None)
  Receive Date: 20120611
  Receipt Date: 20120601
  Transmission Date: 20120825
  Serious: Yes (Other)
  Sender: FDA-Public Use
  Company Number: US-CELGENEUS-163-21880-12030136

PATIENT
  Sex: Female
  Weight: 60 kg

DRUGS (21)
  1. ACYCLOVIR [Concomitant]
     Dosage: 400 MILLIGRAM
     Route: 048
  2. LEXAPRO [Concomitant]
     Dosage: 10 MILLIGRAM
     Route: 048
  3. MULTI-VITAMINS [Concomitant]
     Route: 048
  4. NIFEDIPINE [Concomitant]
     Dosage: 60 MILLIGRAM
     Route: 048
  5. PREVACID [Concomitant]
     Dosage: 15 MILLIGRAM
     Route: 048
  6. REVLIMID [Suspect]
     Dosage: 10 MILLIGRAM
     Route: 048
  7. LEVOTHYROXINE SODIUM [Concomitant]
     Dosage: 112 MICROGRAM
     Route: 048
  8. VITAMIN B-12 [Concomitant]
     Dosage: 1000 MICROGRAM
     Route: 048
  9. REVLIMID [Suspect]
     Indication: MULTIPLE MYELOMA
     Dosage: 25 MILLIGRAM
     Route: 048
     Dates: start: 20070101
  10. NAPROXEN (ALEVE) [Concomitant]
     Dosage: 220 MILLIGRAM
     Route: 048
  11. FEOSOL [Concomitant]
     Route: 048
  12. TYLENOL PM [Concomitant]
     Route: 048
  13. REVLIMID [Suspect]
     Dosage: 10 MILLIGRAM
     Route: 048
     Dates: start: 20071001
  14. ASPIRIN [Concomitant]
     Dosage: 81 MILLIGRAM
     Route: 048
  15. CATAPRES-TTS-1 [Concomitant]
     Dosage: .1 MILLIGRAM
     Route: 062
  16. CLONAZEPAM [Concomitant]
     Dosage: 2 MILLIGRAM
     Route: 048
  17. REVLIMID [Suspect]
     Dosage: 5 MILLIGRAM
     Route: 048
     Dates: start: 20110601
  18. EXTRA STRENGTH TYLENOL [Concomitant]
     Route: 048
  19. ALBUTEROL SULATE [Concomitant]
     Route: 065
  20. ROBITUSSIN-DM [Concomitant]
     Indication: COUGH
     Route: 048
  21. SPIRIVA [Concomitant]
     Dosage: 18 MICROGRAM
     Route: 048

REACTIONS (7)
  - GASTROINTESTINAL DISORDER [None]
  - GAIT DISTURBANCE [None]
  - FATIGUE [None]
  - NASOPHARYNGITIS [None]
  - WRIST FRACTURE [None]
  - NEUROPATHY PERIPHERAL [None]
  - ARTHRITIS [None]
